FAERS Safety Report 21848434 (Version 2)
Quarter: 2023Q2

REPORT INFORMATION
  Report Type: Spontaneous
  Country: US (occurrence: US)
  Receive Date: 20230111
  Receipt Date: 20230405
  Transmission Date: 20230722
  Serious: No
  Sender: FDA-Public Use
  Company Number: US-CHEMOCENTRYX, INC.-2022USCCXI0423

PATIENT

DRUGS (1)
  1. TAVNEOS [Suspect]
     Active Substance: AVACOPAN
     Indication: Product used for unknown indication
     Dosage: 30 MG (3 CAPSULES), 2X/DAY WITH FOOD
     Route: 048

REACTIONS (2)
  - Abdominal discomfort [Not Recovered/Not Resolved]
  - COVID-19 [Recovered/Resolved]
